FAERS Safety Report 18224165 (Version 2)
Quarter: 2025Q1

REPORT INFORMATION
  Report Type: Report from Study
  Country: US (occurrence: US)
  Receive Date: 20200902
  Receipt Date: 20250106
  Transmission Date: 20250409
  Serious: Yes (Other)
  Sender: GILEAD
  Company Number: US-GILEAD-2020-0490672

PATIENT
  Age: 40 Year
  Sex: Male
  Weight: 64.853 kg

DRUGS (12)
  1. AXICABTAGENE CILOLEUCEL [Suspect]
     Active Substance: AXICABTAGENE CILOLEUCEL
     Indication: Burkitt^s lymphoma
     Route: 042
     Dates: start: 20200727, end: 20200727
  2. ACYCLOVIR [Concomitant]
     Active Substance: ACYCLOVIR
     Dates: start: 20200727, end: 20200803
  3. POTASSIUM CHLORIDE [Concomitant]
     Active Substance: POTASSIUM CHLORIDE
     Dates: start: 20200727, end: 20200728
  4. RIVAROXABAN [Concomitant]
     Active Substance: RIVAROXABAN
     Dates: start: 20200727, end: 20200831
  5. ALLOPURINOL [Concomitant]
     Active Substance: ALLOPURINOL
     Dates: start: 20200727, end: 20200730
  6. BICTEGRAVIR\EMTRICITABINE\TENOFOVIR ALAFENAMIDE [Concomitant]
     Active Substance: BICTEGRAVIR\EMTRICITABINE\TENOFOVIR ALAFENAMIDE
     Dates: start: 20200728, end: 20200803
  7. GABAPENTIN [Concomitant]
     Active Substance: GABAPENTIN
     Dates: start: 20200727, end: 20200803
  8. SODIUM CHLORIDE [Concomitant]
     Active Substance: SODIUM CHLORIDE
     Dates: start: 20200727, end: 20200730
  9. LEVETIRACETAM [Concomitant]
     Active Substance: LEVETIRACETAM
     Dates: start: 20200727, end: 20200803
  10. MORPHINE [Concomitant]
     Active Substance: MORPHINE
     Dates: start: 20200727, end: 20200803
  11. CIPROFLOXACIN [Concomitant]
     Active Substance: CIPROFLOXACIN
     Dates: start: 20200727, end: 20200728
  12. DAPTOMYCIN [Concomitant]
     Active Substance: DAPTOMYCIN
     Dates: start: 20200727, end: 20200803

REACTIONS (4)
  - Burkitt^s lymphoma [Not Recovered/Not Resolved]
  - Cytokine release syndrome [Recovered/Resolved]
  - Neutropenia [Recovered/Resolved]
  - Drug ineffective [Not Recovered/Not Resolved]

NARRATIVE: CASE EVENT DATE: 20200728
